FAERS Safety Report 4428416-8 (Version None)
Quarter: 2004Q3

REPORT INFORMATION
  Report Type: 
  Country: None (occurrence: None)
  Receive Date: 20040818
  Receipt Date: 20040722
  Transmission Date: 20050211
  Serious: Yes (Hospitalization)
  Sender: FDA-Public Use
  Company Number: PHFR2004GB02947

PATIENT
  Age: 55 Year
  Sex: Male

DRUGS (4)
  1. CLOZARIL [Suspect]
     Indication: SCHIZOPHRENIA
     Dosage: 2.8G/OVERDOSE
     Route: 048
     Dates: start: 20030602
  2. CLOZARIL [Suspect]
     Dosage: 200 MG, BID
     Route: 048
  3. CLOZARIL [Suspect]
     Dosage: 3-4 DAYS SUPPLY OF 200MG/BD
     Route: 048
     Dates: start: 20040801
  4. VENLAFAXINE HCL [Suspect]
     Route: 065

REACTIONS (4)
  - LIMB DISCOMFORT [None]
  - OVERDOSE [None]
  - PERIORBITAL HAEMATOMA [None]
  - SOMNOLENCE [None]
